FAERS Safety Report 22150634 (Version 2)
Quarter: 2023Q2

REPORT INFORMATION
  Report Type: Spontaneous
  Country: GB (occurrence: GB)
  Receive Date: 20230329
  Receipt Date: 20230406
  Transmission Date: 20230721
  Serious: Yes (Other)
  Sender: FDA-Public Use
  Company Number: GB-GLAXOSMITHKLINE-GB2023EME044821

PATIENT

DRUGS (1)
  1. NIRAPARIB [Suspect]
     Active Substance: NIRAPARIB
     Indication: Ovarian cancer stage III
     Dosage: 100 MG, QD
     Dates: end: 202302

REACTIONS (5)
  - Anaplastic large-cell lymphoma [Unknown]
  - Lymphadenopathy [Not Recovered/Not Resolved]
  - General physical health deterioration [Unknown]
  - Tooth infection [Unknown]
  - Malaise [Unknown]

NARRATIVE: CASE EVENT DATE: 20221201
